FAERS Safety Report 9735813 (Version 2)
Quarter: 2013Q4

REPORT INFORMATION
  Report Type: Spontaneous
  Country: US (occurrence: US)
  Receive Date: 20131206
  Receipt Date: 20131206
  Transmission Date: 20140711
  Serious: No
  Sender: FDA-Public Use
  Company Number: US-GILEAD-2009-0022657

PATIENT
  Sex: Female
  Weight: 70.31 kg

DRUGS (19)
  1. LETAIRIS [Suspect]
     Indication: PULMONARY ARTERIAL HYPERTENSION
     Route: 048
     Dates: start: 20080112
  2. COUMADIN [Concomitant]
  3. LASIX [Concomitant]
  4. ZYRTEC [Concomitant]
  5. CLARITIN [Concomitant]
  6. ADVAIR [Concomitant]
  7. SINGULAIR [Concomitant]
  8. TYLENOL [Concomitant]
  9. VICODIN [Concomitant]
  10. SOMA [Concomitant]
  11. LYRICA [Concomitant]
  12. VALTREX [Concomitant]
  13. ZOVIRAX [Concomitant]
  14. FLEXERIL [Concomitant]
  15. NEURONTIN [Concomitant]
  16. CAPSAICIN [Concomitant]
  17. CALCIUM [Concomitant]
  18. FISH OIL [Concomitant]
  19. POTASSIUM CHLORIDE [Concomitant]

REACTIONS (1)
  - Cataract [Unknown]
